FAERS Safety Report 6112371-9 (Version None)
Quarter: 2009Q1

REPORT INFORMATION
  Report Type: 
  Country: None (occurrence: None)
  Receive Date: 20090311
  Receipt Date: 20090311
  Transmission Date: 20090719
  Serious: Yes (Other)
  Sender: FDA-Public Use
  Company Number: None

PATIENT
  Sex: Female
  Weight: 58.9676 kg

DRUGS (1)
  1. YAZ [Suspect]
     Indication: CONTRACEPTION
     Dosage: 1 TABLET DAILY 047
     Dates: start: 20071201

REACTIONS (26)
  - ABDOMINAL DISCOMFORT [None]
  - AFFECT LABILITY [None]
  - ANGER [None]
  - ARTHRALGIA [None]
  - ASTHENIA [None]
  - CHEST PAIN [None]
  - DEPRESSION [None]
  - DYSPEPSIA [None]
  - HAEMORRHAGE [None]
  - INFLUENZA [None]
  - INSOMNIA [None]
  - LACERATION [None]
  - METRORRHAGIA [None]
  - MOOD SWINGS [None]
  - MULTIPLE ALLERGIES [None]
  - NASOPHARYNGITIS [None]
  - NAUSEA [None]
  - NEGATIVISM [None]
  - NIGHT SWEATS [None]
  - PANIC ATTACK [None]
  - PERSONALITY CHANGE [None]
  - PHARYNGITIS STREPTOCOCCAL [None]
  - SELF INJURIOUS BEHAVIOUR [None]
  - SOCIAL AVOIDANT BEHAVIOUR [None]
  - SUICIDAL IDEATION [None]
  - THINKING ABNORMAL [None]
